FAERS Safety Report 12610087 (Version 1)
Quarter: 2016Q3

REPORT INFORMATION
  Report Type: Spontaneous
  Country: US (occurrence: None)
  Receive Date: 20160729
  Receipt Date: 20160729
  Transmission Date: 20161109
  Serious: No
  Sender: FDA-Public Use
  Company Number: None

PATIENT
  Sex: Male

DRUGS (1)
  1. SERTRALINE TABLETS, USP, 25 MG [Suspect]
     Active Substance: SERTRALINE HYDROCHLORIDE
     Route: 048

REACTIONS (4)
  - Tongue discomfort [None]
  - Product quality issue [None]
  - Oral pain [None]
  - Hypoaesthesia oral [None]
